FAERS Safety Report 13562717 (Version 2)
Quarter: 2017Q2

REPORT INFORMATION
  Report Type: Spontaneous
  Country: FR (occurrence: FR)
  Receive Date: 20170519
  Receipt Date: 20170525
  Transmission Date: 20170830
  Serious: Yes (Hospitalization, Disabling, Other)
  Sender: FDA-Public Use
  Company Number: FR-ROCHE-1936493

PATIENT
  Age: 95 Year
  Sex: Male

DRUGS (4)
  1. APROVEL [Suspect]
     Active Substance: IRBESARTAN
     Indication: HYPERTENSION
     Dosage: 300 MG, UNK
     Route: 048
     Dates: start: 201509
  2. LUCENTIS [Suspect]
     Active Substance: RANIBIZUMAB
     Indication: AGE-RELATED MACULAR DEGENERATION
     Dosage: UNK
     Route: 031
     Dates: start: 20170313, end: 20170313
  3. PREVISCAN (FRANCE) [Concomitant]
     Active Substance: FLUINDIONE
     Indication: PRODUCT USED FOR UNKNOWN INDICATION
     Route: 048
     Dates: start: 201402
  4. MONOPROST [Concomitant]
     Active Substance: LATANOPROST
     Indication: GLAUCOMA
     Route: 047
     Dates: start: 201302

REACTIONS (6)
  - Drug intolerance [Unknown]
  - Dizziness [Recovered/Resolved]
  - Hypoaesthesia [Not Recovered/Not Resolved]
  - Paraesthesia [Not Recovered/Not Resolved]
  - Cerebrovascular accident [Not Recovered/Not Resolved]
  - Headache [Recovered/Resolved]

NARRATIVE: CASE EVENT DATE: 201703
